FAERS Safety Report 9333858 (Version 1)
Quarter: 2013Q2

REPORT INFORMATION
  Report Type: Spontaneous
  Country: US (occurrence: US)
  Receive Date: 20130606
  Receipt Date: 20130606
  Transmission Date: 20140414
  Serious: No
  Sender: FDA-Public Use
  Company Number: US-AMGEN-USASP2013006896

PATIENT
  Age: 64 Year
  Sex: Female

DRUGS (2)
  1. PROLIA [Suspect]
     Indication: OSTEOPOROSIS POSTMENOPAUSAL
     Dosage: 60 MG, UNK
     Dates: start: 20120309
  2. VIACTIV                            /00751501/ [Concomitant]

REACTIONS (11)
  - Renal impairment [Unknown]
  - Dysphonia [Unknown]
  - Dysgeusia [Not Recovered/Not Resolved]
  - Colonoscopy [Unknown]
  - Weight decreased [Unknown]
  - Viral infection [Unknown]
  - Cough [Not Recovered/Not Resolved]
  - Respiratory tract congestion [Unknown]
  - Oropharyngeal pain [Unknown]
  - Larynx irritation [Unknown]
  - Malaise [Unknown]
